FAERS Safety Report 5349522-X (Version None)
Quarter: 2007Q2

REPORT INFORMATION
  Report Type: 
  Country: None (occurrence: None)
  Receive Date: 20070607
  Receipt Date: 20070529
  Transmission Date: 20071010
  Serious: Yes (Congenital Anomaly)
  Sender: FDA-Public Use
  Company Number: PHFR2007GB01737

PATIENT
  Sex: Male

DRUGS (1)
  1. BROMOCRIPTINE MESYLATE [Suspect]
     Dosage: MATERNAL DOSE 2.5MG/DAY
     Route: 064

REACTIONS (2)
  - CONGENITAL ANOMALY [None]
  - DRUG EXPOSURE DURING PREGNANCY [None]
